FAERS Safety Report 21015148 (Version 1)
Quarter: 2022Q2

REPORT INFORMATION
  Report Type: Spontaneous
  Country: FR (occurrence: FR)
  Receive Date: 20220628
  Receipt Date: 20220628
  Transmission Date: 20220721
  Serious: Yes (Hospitalization)
  Sender: FDA-Public Use
  Company Number: None

PATIENT
  Age: 65 Year
  Sex: Male
  Weight: 107 kg

DRUGS (6)
  1. IRINOTECAN [Suspect]
     Active Substance: IRINOTECAN
     Indication: Rectal adenocarcinoma
     Dosage: STRENGTH: 20 MG/ML, 400 MG
     Route: 041
     Dates: start: 20210823, end: 20210823
  2. ATROPINE SULFATE [Concomitant]
     Active Substance: ATROPINE SULFATE
     Indication: Chemotherapy side effect prophylaxis
     Dosage: STRENGTH: 0.25 MG/ML, 0,25 MG
     Route: 041
     Dates: start: 20210823, end: 20210823
  3. ONDANSETRON [Concomitant]
     Active Substance: ONDANSETRON
     Indication: Chemotherapy side effect prophylaxis
     Dosage: STRENGTH: 2 MG/ML, SOLUTION INJECTABLE, 0,25 MG
     Route: 041
     Dates: start: 20210823, end: 20210823
  4. LEVOLEUCOVORIN DISODIUM [Concomitant]
     Active Substance: LEVOLEUCOVORIN DISODIUM
     Indication: Chemotherapy side effect prophylaxis
     Dosage: STRENGTH: 50 MG/ML,  SOLUTION FOR INJECTION OR INFUSION
     Route: 041
     Dates: start: 20210823, end: 20210823
  5. BEVACIZUMAB [Concomitant]
     Active Substance: BEVACIZUMAB
     Indication: Rectal adenocarcinoma
     Dosage: STRENGTH:25 MG/ML
     Route: 041
     Dates: start: 20210823, end: 20210823
  6. METHYLPREDNISOLONE [Concomitant]
     Active Substance: METHYLPREDNISOLONE
     Indication: Chemotherapy side effect prophylaxis
     Dosage: STRENGTH: 120MG, POWDER FOR SOLUTION FOR INJECTION (IM-IV)
     Route: 041
     Dates: start: 20210823, end: 20210823

REACTIONS (1)
  - Infusion related reaction [Recovered/Resolved]

NARRATIVE: CASE EVENT DATE: 20210823
